FAERS Safety Report 14331181 (Version 3)
Quarter: 2019Q3

REPORT INFORMATION
  Report Type: Spontaneous
  Country: JP (occurrence: JP)
  Receive Date: 20171228
  Receipt Date: 20190729
  Transmission Date: 20191004
  Serious: Yes (Hospitalization, Other)
  Sender: FDA-Public Use
  Company Number: JP-GILEAD-2017-0312712AA

PATIENT
  Age: 75 Year
  Sex: Female

DRUGS (2)
  1. HARVONI [Suspect]
     Active Substance: LEDIPASVIR\SOFOSBUVIR
     Indication: HEPATITIS C
     Dosage: UNK
     Route: 048
     Dates: start: 20160412, end: 20160705
  2. AMLODIN [Concomitant]
     Active Substance: AMLODIPINE BESYLATE

REACTIONS (6)
  - Subarachnoid haemorrhage [Unknown]
  - Hepatitis C [Unknown]
  - Malaise [Not Recovered/Not Resolved]
  - Subarachnoid haemorrhage [Unknown]
  - Drug ineffective [Unknown]
  - Memory impairment [Not Recovered/Not Resolved]

NARRATIVE: CASE EVENT DATE: 20160709
